FAERS Safety Report 8952885 (Version 1)
Quarter: 2012Q4

REPORT INFORMATION
  Report Type: 
  Country: US (occurrence: US)
  Receive Date: 20121203
  Receipt Date: 20121203
  Transmission Date: 20130627
  Serious: Yes (Other)
  Sender: FDA-Public Use
  Company Number: CHPA2012US024394

PATIENT
  Age: 93 Year
  Sex: Female

DRUGS (4)
  1. VOLTAREN GEL [Suspect]
     Indication: NERVE INJURY
     Dosage: 4 g, QID
     Route: 061
     Dates: start: 201211, end: 20121127
  2. DRUG THERAPY NOS [Concomitant]
     Indication: BLOOD PRESSURE
  3. DRUG THERAPY NOS [Concomitant]
  4. IRON [Concomitant]

REACTIONS (6)
  - Limb injury [Not Recovered/Not Resolved]
  - Wound [Not Recovered/Not Resolved]
  - Rash [Not Recovered/Not Resolved]
  - Off label use [Unknown]
  - Overdose [Unknown]
  - Wrong technique in drug usage process [Unknown]
